FAERS Safety Report 24728168 (Version 2)
Quarter: 2025Q3

REPORT INFORMATION
  Report Type: Report from Study
  Country: BR (occurrence: BR)
  Receive Date: 20241212
  Receipt Date: 20250809
  Transmission Date: 20251020
  Serious: Yes (Hospitalization, Other)
  Sender: ALEXION PHARMACEUTICALS
  Company Number: BR-AstraZeneca-CH-00762428A

PATIENT
  Sex: Female
  Weight: 70 kg

DRUGS (3)
  1. TEZEPELUMAB [Suspect]
     Active Substance: TEZEPELUMAB
     Indication: Asthma
     Dosage: 210 MILLIGRAM, Q4W
     Dates: start: 202401
  2. TEZEPELUMAB [Suspect]
     Active Substance: TEZEPELUMAB
  3. RIVOTRIL [Concomitant]
     Active Substance: CLONAZEPAM

REACTIONS (7)
  - Blood potassium decreased [Recovering/Resolving]
  - Syncope [Unknown]
  - Off label use [Unknown]
  - Inappropriate schedule of product administration [Not Recovered/Not Resolved]
  - Spondylitis [Unknown]
  - Blood pressure decreased [Not Recovered/Not Resolved]
  - Medication error [Unknown]

NARRATIVE: CASE EVENT DATE: 20240401
